FAERS Safety Report 9434132 (Version 1)
Quarter: 2013Q3

REPORT INFORMATION
  Report Type: Spontaneous
  Country: ZA (occurrence: ZA)
  Receive Date: 20130801
  Receipt Date: 20130801
  Transmission Date: 20140515
  Serious: Yes (Other)
  Sender: FDA-Public Use
  Company Number: ZA-ROCHE-1240391

PATIENT
  Sex: Male
  Weight: 116 kg

DRUGS (4)
  1. BONDRONAT [Suspect]
     Indication: PROSTATE CANCER
     Route: 042
     Dates: start: 20081111
  2. ATENOLOL [Concomitant]
     Indication: HYPERTENSION
  3. METFORMIN [Concomitant]
     Indication: DIABETES MELLITUS
     Route: 065
  4. DYNACIRC [Concomitant]
     Indication: DIABETES MELLITUS

REACTIONS (2)
  - Creatinine renal clearance abnormal [Recovered/Resolved]
  - Blood creatinine increased [Unknown]
